FAERS Safety Report 6165164-0 (Version None)
Quarter: 2009Q2

REPORT INFORMATION
  Report Type: 
  Country: None (occurrence: None)
  Receive Date: 20090423
  Receipt Date: 20090414
  Transmission Date: 20091009
  Serious: Yes (Hospitalization)
  Sender: FDA-Public Use
  Company Number: US-ABBOTT-09P-163-0568202-00

PATIENT
  Sex: Female

DRUGS (5)
  1. TRILIPIX [Suspect]
     Indication: BLOOD TRIGLYCERIDES INCREASED
     Dates: start: 20090201, end: 20090319
  2. ADVIL [Concomitant]
     Indication: HEADACHE
     Dosage: TID AS NEEDED
     Dates: end: 20090301
  3. ADVIL [Concomitant]
     Indication: DYSMENORRHOEA
  4. ATENOLOL [Concomitant]
     Indication: MIGRAINE PROPHYLAXIS
  5. ZOLOFT [Concomitant]
     Indication: DRUG USE FOR UNKNOWN INDICATION

REACTIONS (3)
  - GASTRITIS [None]
  - MELAENA [None]
  - UPPER GASTROINTESTINAL HAEMORRHAGE [None]
